FAERS Safety Report 25553961 (Version 1)
Quarter: 2025Q3

REPORT INFORMATION
  Report Type: Spontaneous
  Country: CN (occurrence: CN)
  Receive Date: 20250715
  Receipt Date: 20250715
  Transmission Date: 20251021
  Serious: Yes (Other)
  Sender: RANBAXY
  Company Number: CN-SUN PHARMACEUTICAL INDUSTRIES LTD-2025R1-496323

PATIENT
  Age: 66 Year
  Sex: Female

DRUGS (4)
  1. RIVAROXABAN [Interacting]
     Active Substance: RIVAROXABAN
     Indication: Deep vein thrombosis
     Dosage: 15 MILLIGRAM, BID
     Route: 065
  2. RIVAROXABAN [Interacting]
     Active Substance: RIVAROXABAN
     Dosage: 20 MILLIGRAM, QD
     Route: 065
  3. RIVAROXABAN [Interacting]
     Active Substance: RIVAROXABAN
     Dosage: 10 MILLIGRAM, QD
     Route: 065
  4. ABEMACICLIB [Suspect]
     Active Substance: ABEMACICLIB
     Indication: Breast cancer
     Dosage: 150 MILLIGRAM, BID
     Route: 065

REACTIONS (3)
  - Haemorrhage [Unknown]
  - Drug interaction [Unknown]
  - Drug level increased [Unknown]
